FAERS Safety Report 10446669 (Version 1)
Quarter: 2014Q3

REPORT INFORMATION
  Report Type: Spontaneous
  Country: US (occurrence: None)
  Receive Date: 20140910
  Receipt Date: 20140910
  Transmission Date: 20150326
  Serious: Yes (Other)
  Sender: FDA-Public Use
  Company Number: None

PATIENT
  Age: 57 Year
  Sex: Female
  Weight: 81.65 kg

DRUGS (3)
  1. VICOPROFEN [Suspect]
     Active Substance: HYDROCODONE BITARTRATE\IBUPROFEN
     Indication: ARTHRALGIA
     Dosage: 1 TABLET EVERY 12 HOURS TWICE DAILY TAKEN BY MOUTH
     Route: 048
     Dates: start: 20140825, end: 20140909
  2. VICOPROFEN [Suspect]
     Active Substance: HYDROCODONE BITARTRATE\IBUPROFEN
     Indication: NERVE COMPRESSION
     Dosage: 1 TABLET EVERY 12 HOURS TWICE DAILY TAKEN BY MOUTH
     Route: 048
     Dates: start: 20140825, end: 20140909
  3. VICOPROFEN [Suspect]
     Active Substance: HYDROCODONE BITARTRATE\IBUPROFEN
     Indication: INTERVERTEBRAL DISC PROTRUSION
     Dosage: 1 TABLET EVERY 12 HOURS TWICE DAILY TAKEN BY MOUTH
     Route: 048
     Dates: start: 20140825, end: 20140909

REACTIONS (6)
  - Drug ineffective [None]
  - Gait disturbance [None]
  - Vertigo [None]
  - Product quality issue [None]
  - Drug dependence [None]
  - Vision blurred [None]

NARRATIVE: CASE EVENT DATE: 20140905
